FAERS Safety Report 14768536 (Version 1)
Quarter: 2018Q2

REPORT INFORMATION
  Report Type: Spontaneous
  Country: US (occurrence: US)
  Receive Date: 20180410
  Receipt Date: 20180410
  Transmission Date: 20180711
  Serious: No
  Sender: FDA-Public Use
  Company Number: None

PATIENT
  Age: 33 Year
  Sex: Female
  Weight: 63 kg

DRUGS (17)
  1. PLAQUENIL [Concomitant]
     Active Substance: HYDROXYCHLOROQUINE SULFATE
  2. BUPRPION [Concomitant]
  3. DICLOFENAC [Concomitant]
     Active Substance: DICLOFENAC
  4. TINAZIDINE HCL 4MG [Suspect]
     Active Substance: TIZANIDINE HYDROCHLORIDE
     Indication: INSOMNIA
     Dosage: ?          QUANTITY:.5 TABLET(S);?
     Route: 048
  5. GABAPENTIN. [Concomitant]
     Active Substance: GABAPENTIN
  6. PROAIR HFA [Concomitant]
     Active Substance: ALBUTEROL SULFATE
  7. BUPRENORPHINE. [Concomitant]
     Active Substance: BUPRENORPHINE
  8. NICODERM CQ [Concomitant]
     Active Substance: NICOTINE
  9. PRENATAL VITAMIN PLUS IRON [Concomitant]
  10. CLONAZEPAM. [Concomitant]
     Active Substance: CLONAZEPAM
  11. PAROXETINE. [Concomitant]
     Active Substance: PAROXETINE
  12. ALYACEN [Concomitant]
     Active Substance: ETHINYL ESTRADIOL\NORETHINDRONE
  13. VITAMIN D [Concomitant]
     Active Substance: CHOLECALCIFEROL
  14. PROTONIX [Concomitant]
     Active Substance: PANTOPRAZOLE SODIUM
  15. ACTCLOVIR [Concomitant]
  16. METHOCARBOMAL [Concomitant]
     Active Substance: METHOCARBAMOL
  17. TRIAMCINOLONE ACETONIDE. [Concomitant]
     Active Substance: TRIAMCINOLONE ACETONIDE

REACTIONS (2)
  - Enuresis [None]
  - Pollakiuria [None]

NARRATIVE: CASE EVENT DATE: 20180123
